FAERS Safety Report 8572330-3 (Version None)
Quarter: 2012Q3

REPORT INFORMATION
  Report Type: 
  Country: None (occurrence: None)
  Receive Date: 20120806
  Receipt Date: 20071001
  Transmission Date: 20120928
  Serious: Yes (Other)
  Sender: FDA-Public Use
  Company Number: CO-PFIZER INC-2012188237

PATIENT
  Age: 65 Year
  Sex: Female

DRUGS (8)
  1. NORVASC [Suspect]
     Indication: HYPERTENSION
     Dosage: 10 MG, 1X/DAY
  2. LIPITOR [Suspect]
     Indication: DYSLIPIDAEMIA
     Dosage: 10 MG, 1X/DAY
  3. METOPROLOL TARTRATE [Concomitant]
     Dosage: 50 MG, 3X/DAY
  4. GLIBENCLAMIDE [Concomitant]
     Dosage: 5 MG, 4X/DAY
  5. METFORMIN [Concomitant]
     Dosage: 850 MG, 3X/DAY
  6. TRAZODONE HYDROCHLORIDE [Concomitant]
     Dosage: 50 MG, 1X/DAY
  7. ACETYLSALICYLIC ACID [Concomitant]
     Dosage: 100 MG, 1X/DAY
  8. QUINAPRIL AND HYDROCHLOROTHIAZIDE [Suspect]
     Indication: HYPERTENSION
     Dosage: 20/12.5 MG, 1X/DAY

REACTIONS (5)
  - FACIAL NEURALGIA [None]
  - ELECTROCARDIOGRAM ST SEGMENT ELEVATION [None]
  - WHEEZING [None]
  - RENAL FAILURE CHRONIC [None]
  - PROTEINURIA [None]
